FAERS Safety Report 5716122-9 (Version None)
Quarter: 2008Q2

REPORT INFORMATION
  Report Type: 
  Country: None (occurrence: None)
  Receive Date: 20080423
  Receipt Date: 20080423
  Transmission Date: 20081010
  Serious: Yes (Life-Threatening, Hospitalization)
  Sender: FDA-Public Use
  Company Number: None

PATIENT
  Age: 22 Year
  Sex: Male
  Weight: 84 kg

DRUGS (5)
  1. ZOSYN [Suspect]
     Indication: PSEUDOMONAS INFECTION
     Dosage: ZOSYN 4.5 GM Q6HR IV
     Route: 042
     Dates: start: 20080410, end: 20080416
  2. LEVAQUIN [Concomitant]
  3. VANCOMYCIN [Concomitant]
  4. ERTHROMYCIN OPTHALMIC OINT [Concomitant]
  5. LINEZOLID [Concomitant]

REACTIONS (1)
  - TOXIC EPIDERMAL NECROLYSIS [None]
